FAERS Safety Report 18920098 (Version 1)
Quarter: 2021Q1

REPORT INFORMATION
  Report Type: Spontaneous
  Country: FR (occurrence: FR)
  Receive Date: 20210222
  Receipt Date: 20210222
  Transmission Date: 20210420
  Serious: Yes (Hospitalization)
  Sender: FDA-Public Use
  Company Number: FR-TEVA-2021-FR-1881093

PATIENT
  Age: 74 Year
  Sex: Male

DRUGS (8)
  1. RAMIPRIL. [Suspect]
     Active Substance: RAMIPRIL
     Indication: HYPERTENSION
     Dosage: 1.25MILLIGRAM
     Route: 048
     Dates: start: 2020, end: 20201128
  2. TAHOR [Concomitant]
     Active Substance: ATORVASTATIN CALCIUM
  3. EXACYL [Suspect]
     Active Substance: TRANEXAMIC ACID
     Indication: ANGIOEDEMA
     Dosage: 3GRAM
     Route: 048
     Dates: start: 20201128, end: 20201205
  4. AMAREL [Concomitant]
     Active Substance: GLIMEPIRIDE
  5. GLUCOPHAGE [Concomitant]
     Active Substance: METFORMIN HYDROCHLORIDE
  6. LYRICA [Concomitant]
     Active Substance: PREGABALIN
  7. PLAVIX [Concomitant]
     Active Substance: CLOPIDOGREL BISULFATE
  8. LOXEN [Concomitant]

REACTIONS (2)
  - Eosinophilia [Not Recovered/Not Resolved]
  - Drug eruption [Recovering/Resolving]

NARRATIVE: CASE EVENT DATE: 20201130
